FAERS Safety Report 9692356 (Version 3)
Quarter: 2014Q1

REPORT INFORMATION
  Report Type: Spontaneous
  Country: US (occurrence: US)
  Receive Date: 20131118
  Receipt Date: 20140117
  Transmission Date: 20141002
  Serious: No
  Sender: FDA-Public Use
  Company Number: US-PFIZER INC-2013322860

PATIENT
  Sex: Male

DRUGS (4)
  1. XALATAN [Suspect]
     Indication: GLAUCOMA
     Dosage: ONE DROP IN EACH EYE EACH NIGHT
     Dates: start: 2005
  2. XALATAN [Suspect]
     Indication: INTRAOCULAR PRESSURE INCREASED
     Dosage: UNK
  3. BRIMONIDINE [Suspect]
     Indication: INTRAOCULAR PRESSURE INCREASED
     Dosage: ONE DROP IN EACH EYE TWICE PER DAY
     Dates: start: 2005
  4. BRIMONIDINE [Suspect]
     Indication: GLAUCOMA
     Dosage: UNK

REACTIONS (1)
  - Drug ineffective [Unknown]
